FAERS Safety Report 8844451 (Version 1)
Quarter: 2012Q4

REPORT INFORMATION
  Report Type: Spontaneous
  Country: US (occurrence: None)
  Receive Date: 20121016
  Receipt Date: 20121016
  Transmission Date: 20130627
  Serious: Yes (Hospitalization)
  Sender: FDA-Public Use
  Company Number: None

PATIENT
  Age: 82 Year
  Sex: Female
  Weight: 78.8 kg

DRUGS (10)
  1. COUMADIN [Suspect]
     Indication: CHRONIC ATRIAL FIBRILLATION
     Route: 048
  2. RYTHMOL [Concomitant]
  3. PRILOSEC [Concomitant]
  4. METOPROLOL [Concomitant]
  5. CRESTOR [Concomitant]
  6. VIT D [Concomitant]
  7. NEURONTIN [Concomitant]
  8. FISH OIL [Concomitant]
  9. XANAX [Concomitant]
  10. VITAMINS [Concomitant]

REACTIONS (3)
  - Rectal haemorrhage [None]
  - Refusal of treatment by patient [None]
  - Diverticulum [None]
